FAERS Safety Report 7328827-7 (Version None)
Quarter: 2011Q1

REPORT INFORMATION
  Report Type: 
  Country: None (occurrence: None)
  Receive Date: 20110303
  Receipt Date: 20110222
  Transmission Date: 20110831
  Serious: Yes (Death, Other)
  Sender: FDA-Public Use
  Company Number: HK-ROCHE-759389

PATIENT
  Age: 63 Year
  Sex: Female

DRUGS (1)
  1. TAMIFLU [Suspect]
     Route: 065

REACTIONS (2)
  - GENERAL PHYSICAL HEALTH DETERIORATION [None]
  - DRUG INEFFECTIVE [None]
